FAERS Safety Report 20551741 (Version 1)
Quarter: 2022Q1

REPORT INFORMATION
  Report Type: Spontaneous
  Country: CN (occurrence: CN)
  Receive Date: 20220304
  Receipt Date: 20220304
  Transmission Date: 20220423
  Serious: Yes (Other)
  Sender: FDA-Public Use
  Company Number: CN-PFIZER INC-202200327745

PATIENT
  Age: 22 Year
  Sex: Male
  Weight: 48 kg

DRUGS (4)
  1. ZOLOFT [Suspect]
     Active Substance: SERTRALINE HYDROCHLORIDE
     Indication: Major depression
     Dosage: 50 MG, 1X/DAY
     Route: 048
     Dates: start: 20220119, end: 20220124
  2. ZOLOFT [Suspect]
     Active Substance: SERTRALINE HYDROCHLORIDE
     Dosage: 100 MG, 1X/DAY
     Route: 048
     Dates: start: 20220124, end: 20220127
  3. JIA PU LE [Concomitant]
     Indication: Major depression
     Dosage: 1 MG, 1X/DAY
     Route: 048
     Dates: start: 20220120, end: 20220127
  4. ESZOPICLONE [Concomitant]
     Active Substance: ESZOPICLONE
     Indication: Major depression
     Dosage: 3 MG, 1X/DAY
     Route: 048
     Dates: start: 20220118, end: 20220127

REACTIONS (7)
  - Myositis [Recovered/Resolved]
  - Rhabdomyolysis [Recovered/Resolved]
  - Blood lactate dehydrogenase increased [Recovered/Resolved]
  - Blood creatine phosphokinase increased [Recovered/Resolved]
  - Alpha hydroxybutyrate dehydrogenase increased [Recovered/Resolved]
  - Blood creatine phosphokinase MB increased [Recovered/Resolved]
  - Fatigue [Recovered/Resolved]

NARRATIVE: CASE EVENT DATE: 20220126
